FAERS Safety Report 8129039-X (Version None)
Quarter: 2012Q1

REPORT INFORMATION
  Report Type: 
  Country: None (occurrence: None)
  Receive Date: 20120210
  Receipt Date: 20110813
  Transmission Date: 20120608
  Serious: No
  Sender: FDA-Public Use
  Company Number: US-BRISTOL-MYERS SQUIBB COMPANY-15969116

PATIENT
  Age: 67 Year
  Sex: Female
  Weight: 91 kg

DRUGS (1)
  1. ORENCIA [Suspect]
     Indication: RHEUMATOID ARTHRITIS
     Dosage: INFUSION UNK-MAY10 RESTARTED NOV10-UNK

REACTIONS (3)
  - RASH GENERALISED [None]
  - PRURITUS [None]
  - PHARYNGITIS [None]
